FAERS Safety Report 13100350 (Version 1)
Quarter: 2017Q1

REPORT INFORMATION
  Report Type: Other
  Country: FR (occurrence: FR)
  Receive Date: 20170110
  Receipt Date: 20170110
  Transmission Date: 20170428
  Serious: Yes (Life-Threatening)
  Sender: FDA-Public Use
  Company Number: FR-TAKEDA-2017TEU000020

PATIENT
  Age: 74 Year
  Sex: Female

DRUGS (18)
  1. EUPRESSYL [Suspect]
     Active Substance: URAPIDIL
     Indication: HYPERTENSION
     Dosage: 30 MG, BID
     Route: 048
     Dates: end: 20161211
  2. IMETH [Suspect]
     Active Substance: METHOTREXATE SODIUM
     Indication: RHEUMATOID ARTHRITIS
     Dosage: UNK, 1/WEEK
     Route: 048
     Dates: end: 20161209
  3. FRAGMINE [Suspect]
     Active Substance: DALTEPARIN SODIUM
     Indication: CEREBROVASCULAR ACCIDENT
     Dosage: 0.2 MG, QD
     Route: 065
     Dates: start: 201611, end: 20161214
  4. LERCANIDIPINE [Concomitant]
     Active Substance: LERCANIDIPINE
     Dosage: UNK
  5. ADENURIC [Suspect]
     Active Substance: FEBUXOSTAT
     Indication: GOUT
     Dosage: 80 MG, QD
     Route: 048
     Dates: end: 20161209
  6. EUPRESSYL [Suspect]
     Active Substance: URAPIDIL
     Dosage: UNK
     Route: 065
     Dates: start: 20161214
  7. KARDEGIC [Suspect]
     Active Substance: ASPIRIN LYSINE
     Dosage: 75 MG, QD
     Route: 048
     Dates: start: 20161213, end: 20161214
  8. BISOCE [Suspect]
     Active Substance: BISOPROLOL
     Indication: HYPERTENSION
     Dosage: 2.5 MG, BID
     Route: 048
     Dates: end: 20161211
  9. DIAMICRON [Suspect]
     Active Substance: GLICLAZIDE
     Indication: TYPE 2 DIABETES MELLITUS
     Dosage: 60 MG, QD
     Route: 048
     Dates: end: 20161209
  10. DIAMICRON [Suspect]
     Active Substance: GLICLAZIDE
     Dosage: UNK
     Route: 065
     Dates: start: 20161214
  11. KARDEGIC [Suspect]
     Active Substance: ASPIRIN LYSINE
     Indication: CEREBROVASCULAR ACCIDENT
     Dosage: 75 MG, QD
     Route: 048
  12. KARDEGIC [Suspect]
     Active Substance: ASPIRIN LYSINE
     Dosage: 160 MG, QD
     Route: 048
  13. BISOCE [Suspect]
     Active Substance: BISOPROLOL
     Dosage: UNK
     Route: 065
     Dates: start: 20161214
  14. GABAPENTIN. [Concomitant]
     Active Substance: GABAPENTIN
     Dosage: UNK
  15. MOLSIDOMIN [Concomitant]
     Dosage: UNK
  16. CRESTOR [Concomitant]
     Active Substance: ROSUVASTATIN CALCIUM
     Dosage: UNK
  17. LASILIX                            /00032601/ [Concomitant]
     Active Substance: FUROSEMIDE
     Dosage: UNK
  18. SPECIAFOLDINE [Concomitant]
     Active Substance: FOLIC ACID
     Dosage: UNK

REACTIONS (4)
  - Anaemia [Recovering/Resolving]
  - Melaena [Recovered/Resolved]
  - Haematemesis [Recovered/Resolved]
  - Gastroduodenal ulcer [Recovering/Resolving]

NARRATIVE: CASE EVENT DATE: 20161209
